FAERS Safety Report 6695331-9 (Version None)
Quarter: 2010Q2

REPORT INFORMATION
  Report Type: 
  Country: None (occurrence: None)
  Receive Date: 20100423
  Receipt Date: 20100416
  Transmission Date: 20101027
  Serious: Yes (Other)
  Sender: FDA-Public Use
  Company Number: US-AMGEN-QUU401541

PATIENT
  Sex: Male
  Weight: 71 kg

DRUGS (12)
  1. NPLATE [Suspect]
     Indication: IDIOPATHIC THROMBOCYTOPENIC PURPURA
     Route: 058
     Dates: start: 20091230, end: 20100120
  2. CORTICOSTEROIDS [Concomitant]
  3. ASPIRIN [Concomitant]
  4. GLUCOVANCE [Concomitant]
  5. ALTACE [Concomitant]
  6. LEVOTHROID [Concomitant]
  7. ZOCOR [Concomitant]
  8. OMEPRAZOLE [Concomitant]
  9. METOPROLOL TARTRATE [Concomitant]
  10. LASIX [Concomitant]
  11. PLAVIX [Concomitant]
  12. INSULIN [Concomitant]

REACTIONS (4)
  - DRUG INEFFECTIVE [None]
  - PLATELET COUNT DECREASED [None]
  - THERAPEUTIC RESPONSE DECREASED [None]
  - THROMBOCYTOPENIA [None]
